FAERS Safety Report 22531760 (Version 1)
Quarter: 2023Q2

REPORT INFORMATION
  Report Type: Spontaneous
  Country: GB (occurrence: GB)
  Receive Date: 20230607
  Receipt Date: 20230607
  Transmission Date: 20230722
  Serious: Yes (Other)
  Sender: FDA-Public Use
  Company Number: None

PATIENT
  Age: 74 Year
  Sex: Female
  Weight: 81 kg

DRUGS (10)
  1. CLARITHROMYCIN [Suspect]
     Active Substance: CLARITHROMYCIN
     Indication: Product used for unknown indication
     Dosage: 1000 MILLIGRAM DAILY;
     Route: 048
     Dates: start: 20230517, end: 20230524
  2. ATORVASTATIN [Concomitant]
     Active Substance: ATORVASTATIN
     Indication: Blood cholesterol
     Dosage: 1 DOSAGE FORMS DAILY;
     Dates: start: 20220811
  3. BENDROFLUMETHIAZIDE [Concomitant]
     Active Substance: BENDROFLUMETHIAZIDE
     Indication: Product used for unknown indication
     Dosage: 1 DOSAGE FORMS DAILY; MORNING,
     Dates: start: 20220811
  4. COAL TAR\COCONUT OIL\SALICYLIC ACID [Concomitant]
     Active Substance: COAL TAR\COCONUT OIL\SALICYLIC ACID
     Indication: Product used for unknown indication
     Dosage: 1 DOSAGE FORMS DAILY;
     Dates: start: 20220811
  5. COCODAMOL [Concomitant]
     Active Substance: ACETAMINOPHEN\CODEINE PHOSPHATE
     Indication: Product used for unknown indication
     Dosage: TAKE ONE OR TWO TABLET(S) UP TO 4 TIMES/DAY (NO...
     Route: 048
     Dates: start: 20220811
  6. ESTRADIOL [Concomitant]
     Active Substance: ESTRADIOL
     Indication: Product used for unknown indication
     Dosage: OR AS DIRECTED,
     Dates: start: 20220811
  7. LEVOTHYROXINE [Concomitant]
     Active Substance: LEVOTHYROXINE
     Indication: Hypothyroidism
     Dosage: 1 DOSAGE FORMS DAILY; MORNING,
     Route: 048
     Dates: start: 20220811
  8. LOSARTAN [Concomitant]
     Active Substance: LOSARTAN
     Indication: Blood pressure measurement
     Dosage: 1 DOSAGE FORMS DAILY;
     Dates: start: 20220811
  9. NYSTATIN [Concomitant]
     Active Substance: NYSTATIN
     Indication: Product used for unknown indication
     Dosage: 4 DOSAGE FORMS DAILY;
     Dates: start: 20230525
  10. OMEPRAZOLE [Concomitant]
     Active Substance: OMEPRAZOLE
     Indication: Gastric disorder
     Dosage: 1 DOSAGE FORMS DAILY;
     Dates: start: 20220811

REACTIONS (3)
  - Mouth ulceration [Recovering/Resolving]
  - Nausea [Recovering/Resolving]
  - Duodenogastric reflux [Recovering/Resolving]
